FAERS Safety Report 16676811 (Version 1)
Quarter: 2019Q3

REPORT INFORMATION
  Report Type: Spontaneous
  Country: GB (occurrence: GB)
  Receive Date: 20190807
  Receipt Date: 20190807
  Transmission Date: 20191004
  Serious: Yes (Other)
  Sender: FDA-Public Use
  Company Number: GB-AMICUS THERAPEUTICS, INC.-AMI_525

PATIENT
  Age: 54 Year
  Sex: Male
  Weight: 100.4 kg

DRUGS (1)
  1. GALAFOLD [Suspect]
     Active Substance: MIGALASTAT HYDROCHLORIDE
     Indication: FABRY^S DISEASE
     Dosage: 123 MILLIGRAM, QOD
     Route: 048

REACTIONS (3)
  - Cardiac hypertrophy [Unknown]
  - Off label use [Unknown]
  - Overdose [Unknown]
